FAERS Safety Report 5097916-2 (Version None)
Quarter: 2006Q3

REPORT INFORMATION
  Report Type: 
  Country: None (occurrence: None)
  Receive Date: 20060905
  Receipt Date: 20060905
  Transmission Date: 20061208
  Serious: Yes (Hospitalization)
  Sender: FDA-Public Use
  Company Number: None

PATIENT
  Age: 69 Year
  Sex: Male
  Weight: 83.9154 kg

DRUGS (17)
  1. DICLOFENAC 75 MG [Suspect]
     Dosage: 75 MG BID PO
     Route: 048
     Dates: start: 20060727, end: 20060830
  2. WARFARIN SODIUM [Suspect]
     Dosage: 5MG SU,TU,WE,TH,SA;  3.75 MON,FRI PO
     Route: 048
     Dates: start: 20030401, end: 20060901
  3. INSULIN [Concomitant]
  4. ALLOPURINOL [Concomitant]
  5. FUROSEMIDE [Concomitant]
  6. HYDRALAZINE [Concomitant]
  7. NITROGLYCERIN [Concomitant]
  8. SERTRALINE [Concomitant]
  9. SODIUM BICARB [Concomitant]
  10. TERAZOSIN [Concomitant]
  11. WARFARIN SODIUM [Concomitant]
  12. ASPIRIN [Concomitant]
  13. GENFIBROSZIL [Concomitant]
  14. LISINOPRIL [Concomitant]
  15. DICLOFENAC [Concomitant]
  16. MORPHINE SO4 [Concomitant]
  17. COLCHICINE [Concomitant]

REACTIONS (9)
  - BRADYCARDIA [None]
  - CHEST PAIN [None]
  - DIZZINESS [None]
  - DYSPNOEA EXERTIONAL [None]
  - DYSSTASIA [None]
  - FATIGUE [None]
  - GASTROINTESTINAL HAEMORRHAGE [None]
  - RENAL FAILURE ACUTE [None]
  - ULCER [None]
